FAERS Safety Report 5486469-2 (Version None)
Quarter: 2007Q4

REPORT INFORMATION
  Report Type: 
  Country: None (occurrence: None)
  Receive Date: 20071016
  Receipt Date: 20071008
  Transmission Date: 20080405
  Serious: Yes (Other)
  Sender: FDA-Public Use
  Company Number: B0488721A

PATIENT
  Age: 82 Year
  Sex: Male

DRUGS (1)
  1. LAPATINIB [Suspect]
     Indication: METASTATIC GASTRIC CANCER
     Dosage: 1500MG PER DAY
     Route: 048

REACTIONS (2)
  - MYOCARDIAL INFARCTION [None]
  - MYOCARDIAL ISCHAEMIA [None]
